FAERS Safety Report 7443409-4 (Version None)
Quarter: 2011Q2

REPORT INFORMATION
  Report Type: 
  Country: None (occurrence: None)
  Receive Date: 20110428
  Receipt Date: 20110426
  Transmission Date: 20111010
  Serious: Yes (Other)
  Sender: FDA-Public Use
  Company Number: CN-PFIZER INC-2011090120

PATIENT
  Age: 88 Year
  Sex: Female

DRUGS (1)
  1. GLUCOTROL [Suspect]
     Route: 048

REACTIONS (2)
  - CARDIAC DISCOMFORT [None]
  - PALPITATIONS [None]
